FAERS Safety Report 18292418 (Version 2)
Quarter: 2020Q4

REPORT INFORMATION
  Report Type: Spontaneous
  Country: AT (occurrence: AT)
  Receive Date: 20200921
  Receipt Date: 20201008
  Transmission Date: 20210113
  Serious: Yes (Death, Other)
  Sender: FDA-Public Use
  Company Number: AT-BAUSCH-BL-2020-026532

PATIENT
  Age: 59 Year
  Sex: Female

DRUGS (9)
  1. DEXAMETHASONE. [Suspect]
     Active Substance: DEXAMETHASONE
     Indication: PLASMA CELL MYELOMA
     Route: 065
     Dates: start: 20200704, end: 202008
  2. CARFILZOMIB [Suspect]
     Active Substance: CARFILZOMIB
     Indication: PLASMA CELL MYELOMA
     Dosage: D1,8,15 CYCLE 3
     Route: 065
     Dates: start: 2020, end: 202007
  3. DARATUMUMAB [Suspect]
     Active Substance: DARATUMUMAB
     Indication: PLASMA CELL MYELOMA
     Dosage: WEEKLY CYCLE 1,2, EVERY TWO WEEKS CYCLE 3-6, THEN EVERY 4 WEEKS
     Route: 065
     Dates: start: 202007
  4. NOMEXOR [Concomitant]
     Active Substance: NEBIVOLOL HYDROCHLORIDE
     Indication: PRODUCT USED FOR UNKNOWN INDICATION
     Dosage: AS NECESSARY
  5. POMALIDOMIDE [Suspect]
     Active Substance: POMALIDOMIDE
     Indication: PLASMA CELL MYELOMA
     Dosage: EVERY SECOND DAY
     Route: 065
     Dates: start: 202007, end: 2020
  6. ARIMIDEX [Concomitant]
     Active Substance: ANASTROZOLE
     Indication: PRODUCT USED FOR UNKNOWN INDICATION
     Dosage: AS NECESSARY
  7. BERODUAL [Concomitant]
     Active Substance: FENOTEROL HYDROBROMIDE\IPRATROPIUM BROMIDE
     Indication: PRODUCT USED FOR UNKNOWN INDICATION
     Dosage: AS NECESSARY
  8. CARFILZOMIB [Suspect]
     Active Substance: CARFILZOMIB
     Dosage: 20/36 MG/M2 ON DAY 1, 2, 8, 9, 15 AND 16 FOR CYCLE 1-2
     Route: 065
     Dates: start: 202004, end: 2020
  9. CYCLOPHOSPHAMIDE. [Suspect]
     Active Substance: CYCLOPHOSPHAMIDE
     Indication: PLASMA CELL MYELOMA
     Dosage: D1,8,15
     Route: 065
     Dates: start: 20200704, end: 202007

REACTIONS (3)
  - Off label use [Unknown]
  - Pancytopenia [Unknown]
  - Plasma cell myeloma [Fatal]

NARRATIVE: CASE EVENT DATE: 2020
